FAERS Safety Report 18044832 (Version 1)
Quarter: 2020Q3

REPORT INFORMATION
  Report Type: Spontaneous
  Country: FR (occurrence: FR)
  Receive Date: 20200720
  Receipt Date: 20200720
  Transmission Date: 20201103
  Serious: Yes (Life-Threatening)
  Sender: FDA-Public Use
  Company Number: FR-MYLANLABS-2020M1063967

PATIENT
  Age: 52 Year
  Sex: Male
  Weight: 80 kg

DRUGS (3)
  1. DOXORUBICINE TEVA [Concomitant]
     Active Substance: DOXORUBICIN
     Indication: MESOTHELIOMA
     Dosage: 2.8 MILLIGRAM
     Route: 033
     Dates: start: 20190722, end: 20200106
  2. BISOPROLOL [Concomitant]
     Active Substance: BISOPROLOL
     Dosage: UNK
  3. CISPLATIN. [Suspect]
     Active Substance: CISPLATIN
     Indication: EPITHELIOID MESOTHELIOMA
     Dosage: 14 MILLIGRAM
     Route: 033
     Dates: start: 20190722, end: 20200107

REACTIONS (2)
  - Respiratory distress [Recovered/Resolved]
  - Bronchospasm [Recovered/Resolved]

NARRATIVE: CASE EVENT DATE: 20200107
